FAERS Safety Report 25564366 (Version 1)
Quarter: 2025Q3

REPORT INFORMATION
  Report Type: Spontaneous
  Country: US (occurrence: US)
  Receive Date: 20250716
  Receipt Date: 20250716
  Transmission Date: 20251020
  Serious: Yes (Death, Other)
  Sender: ZYDUS PHARM
  Company Number: US-CADILA HEALTHCARE LIMITED-US-ZYDUS-125849

PATIENT

DRUGS (9)
  1. NELARABINE [Suspect]
     Active Substance: NELARABINE
     Indication: T-cell type acute leukaemia
     Route: 065
     Dates: start: 202210
  2. NELARABINE [Suspect]
     Active Substance: NELARABINE
     Route: 065
     Dates: start: 202305
  3. VINCRISTINE [Suspect]
     Active Substance: VINCRISTINE
     Indication: T-cell type acute leukaemia
     Route: 065
  4. VENETOCLAX [Concomitant]
     Active Substance: VENETOCLAX
     Indication: T-cell type acute leukaemia
     Route: 065
  5. AZACITIDINE [Concomitant]
     Active Substance: AZACITIDINE
     Indication: T-cell type acute leukaemia
     Route: 065
  6. CYCLOPHOSPHAMIDE [Concomitant]
     Active Substance: CYCLOPHOSPHAMIDE
     Indication: T-cell type acute leukaemia
     Route: 065
  7. DEXAMETHASONE [Concomitant]
     Active Substance: DEXAMETHASONE
     Indication: T-cell type acute leukaemia
     Route: 065
  8. DASATINIB [Concomitant]
     Active Substance: DASATINIB
     Indication: T-cell type acute leukaemia
     Route: 065
  9. ASPARAGINASE [Concomitant]
     Active Substance: ASPARAGINASE
     Indication: T-cell type acute leukaemia
     Route: 065

REACTIONS (4)
  - Respiratory failure [Fatal]
  - Condition aggravated [Unknown]
  - Neurotoxicity [Unknown]
  - Guillain-Barre syndrome [Unknown]
